FAERS Safety Report 8709461 (Version 3)
Quarter: 2012Q4

REPORT INFORMATION
  Report Type: 
  Country: US (occurrence: US)
  Receive Date: 20120806
  Receipt Date: 20120911
  Transmission Date: 20130627
  Serious: Yes (Other)
  Sender: FDA-Public Use
  Company Number: US-PFIZER INC-2012189391

PATIENT
  Age: 78 Year
  Sex: Female
  Weight: 52.15 kg

DRUGS (3)
  1. PREPARATION H [Suspect]
     Indication: HAEMORRHOIDS
     Dosage: UNK, 2x/day
     Dates: start: 201206, end: 2012
  2. PREPARATION H [Suspect]
     Indication: HAEMORRHOIDS
     Dosage: UNK
     Dates: end: 201206
  3. ALPRAZOLAM [Concomitant]
     Dosage: half at morning and one at night

REACTIONS (3)
  - Haemorrhage [Not Recovered/Not Resolved]
  - Drug ineffective [Unknown]
  - Burning sensation [Recovered/Resolved]
